FAERS Safety Report 7664850 (Version 4)
Quarter: 2013Q3

REPORT INFORMATION
  Report Type: Spontaneous
  Country: US (occurrence: US)
  Receive Date: 20101111
  Receipt Date: 20130927
  Transmission Date: 20140515
  Serious: Yes (Hospitalization, Other)
  Sender: FDA-Public Use
  Company Number: US-ROCHE-718709

PATIENT
  Age: 19 Year
  Sex: Female
  Weight: 77.1 kg

DRUGS (1)
  1. ACCUTANE [Suspect]
     Indication: ACNE
     Route: 065
     Dates: start: 199207, end: 199301

REACTIONS (10)
  - Anal abscess [Unknown]
  - Anal fistula [Unknown]
  - Gastrointestinal injury [Unknown]
  - Colitis ulcerative [Unknown]
  - Crohn^s disease [Unknown]
  - Anal fissure [Unknown]
  - Proctitis [Unknown]
  - Inflammatory bowel disease [Unknown]
  - Depression [Unknown]
  - Diverticulitis [Unknown]
